FAERS Safety Report 11621006 (Version 4)
Quarter: 2020Q1

REPORT INFORMATION
  Report Type: Spontaneous
  Country: RO (occurrence: RO)
  Receive Date: 20151012
  Receipt Date: 20200318
  Transmission Date: 20200409
  Serious: Yes (Hospitalization, Other)
  Sender: FDA-Public Use
  Company Number: ALCN2015RO006244

PATIENT

DRUGS (1)
  1. TROPICAMIDE. [Suspect]
     Active Substance: TROPICAMIDE
     Indication: FUNDOSCOPY
     Dosage: UNK
     Route: 047

REACTIONS (11)
  - Angle closure glaucoma [Unknown]
  - Vomiting [Unknown]
  - Vision blurred [Unknown]
  - Ocular hyperaemia [Unknown]
  - Visual impairment [Unknown]
  - Conjunctival hyperaemia [Unknown]
  - Eye pain [Unknown]
  - Intraocular pressure increased [Recovered/Resolved]
  - Corneal oedema [Unknown]
  - Headache [Unknown]
  - Nausea [Unknown]
